FAERS Safety Report 23957893 (Version 1)
Quarter: 2024Q2

REPORT INFORMATION
  Report Type: Spontaneous
  Country: US (occurrence: US)
  Receive Date: 20240610
  Receipt Date: 20240610
  Transmission Date: 20240716
  Serious: No
  Sender: FDA-Public Use
  Company Number: US-PFIZER INC-202400188355

PATIENT
  Age: 59 Year
  Sex: Male
  Weight: 117.93 kg

DRUGS (2)
  1. OXBRYTA [Suspect]
     Active Substance: VOXELOTOR
     Dosage: 1500 MG, DAILY (3 TABLETS AT BEDTIME)
  2. HYDROXYUREA [Concomitant]
     Active Substance: HYDROXYUREA
     Dosage: THERAPY START DATE: 35 YEARS AGO

REACTIONS (1)
  - Skin ulcer [Recovering/Resolving]
